FAERS Safety Report 6434651-X (Version None)
Quarter: 2009Q4

REPORT INFORMATION
  Report Type: 
  Country: None (occurrence: None)
  Receive Date: 20091110
  Receipt Date: 20091030
  Transmission Date: 20100525
  Serious: Yes (Hospitalization)
  Sender: FDA-Public Use
  Company Number: US-JNJFOC-20090901355

PATIENT
  Sex: Female
  Weight: 68.04 kg

DRUGS (22)
  1. REMICADE [Suspect]
     Route: 042
  2. REMICADE [Suspect]
     Route: 042
  3. REMICADE [Suspect]
     Route: 042
  4. REMICADE [Suspect]
     Route: 042
  5. REMICADE [Suspect]
     Route: 042
  6. REMICADE [Suspect]
     Route: 042
  7. REMICADE [Suspect]
     Route: 042
  8. REMICADE [Suspect]
     Route: 042
  9. REMICADE [Suspect]
     Indication: RHEUMATOID ARTHRITIS
     Route: 042
  10. METHOTREXATE [Suspect]
     Indication: RHEUMATOID ARTHRITIS
  11. PLAVIX [Concomitant]
  12. CLONAZEPAM [Concomitant]
  13. VITAMIN B-12 [Concomitant]
  14. DICLOFENAC [Concomitant]
  15. LORAX [Concomitant]
  16. NIFEDIPINE [Concomitant]
  17. PRAVACHOL [Concomitant]
  18. POTASSIUM CHLORIDE [Concomitant]
  19. FOLIC ACID [Concomitant]
  20. ACETYLSALICYLIC ACID [Concomitant]
  21. PRILOSEC [Concomitant]
  22. COLACE [Concomitant]

REACTIONS (2)
  - LUNG DISORDER [None]
  - LUNG INFECTION [None]
